FAERS Safety Report 20049788 (Version 1)
Quarter: 2021Q4

REPORT INFORMATION
  Report Type: Spontaneous
  Country: GB (occurrence: GB)
  Receive Date: 20211109
  Receipt Date: 20211109
  Transmission Date: 20220303
  Serious: Yes (Other)
  Sender: FDA-Public Use
  Company Number: None

PATIENT
  Age: 74 Year
  Sex: Female
  Weight: 75 kg

DRUGS (4)
  1. BRINZOLAMIDE [Suspect]
     Active Substance: BRINZOLAMIDE
     Indication: Product used for unknown indication
     Dosage: 1 DRP, BID (100 MG/ML)
     Route: 047
     Dates: start: 20210505
  2. ATORVASTATIN [Concomitant]
     Active Substance: ATORVASTATIN
     Indication: Product used for unknown indication
     Dosage: 1 DF, QD
     Route: 065
     Dates: start: 20200827
  3. BIMATOPROST [Concomitant]
     Active Substance: BIMATOPROST
     Indication: Product used for unknown indication
     Dosage: 1 DRP, QD (AT NIGHT)
     Route: 047
     Dates: start: 20210505
  4. FLUTICASONE PROPIONATE [Concomitant]
     Active Substance: FLUTICASONE PROPIONATE
     Indication: Product used for unknown indication
     Dosage: 2 DF, QD (TO BOTH NOSTRILS)
     Route: 045
     Dates: start: 20191216

REACTIONS (2)
  - Ocular hyperaemia [Unknown]
  - Eye pain [Unknown]

NARRATIVE: CASE EVENT DATE: 20211015
